FAERS Safety Report 7601710-5 (Version None)
Quarter: 2011Q3

REPORT INFORMATION
  Report Type: 
  Country: None (occurrence: None)
  Receive Date: 20110711
  Receipt Date: 20110705
  Transmission Date: 20111222
  Serious: Yes (Other)
  Sender: FDA-Public Use
  Company Number: US-PFIZER INC-2011150923

PATIENT
  Sex: Female
  Weight: 81.633 kg

DRUGS (2)
  1. ROBITUSSIN NIGHT TIME COUGH AND COLD [Suspect]
     Indication: NASOPHARYNGITIS
  2. ROBITUSSIN NIGHT TIME COUGH AND COLD [Suspect]
     Indication: COUGH
     Dosage: 4 TEASPOONS, UNK
     Dates: start: 20110704, end: 20110704

REACTIONS (7)
  - DRUG INEFFECTIVE [None]
  - CHILLS [None]
  - BLOOD PRESSURE INCREASED [None]
  - HYPERHIDROSIS [None]
  - VISION BLURRED [None]
  - DYSKINESIA [None]
  - INSOMNIA [None]
